FAERS Safety Report 16206433 (Version 2)
Quarter: 2019Q2

REPORT INFORMATION
  Report Type: Spontaneous
  Country: JP (occurrence: JP)
  Receive Date: 20190417
  Receipt Date: 20190620
  Transmission Date: 20190711
  Serious: Yes (Life-Threatening, Hospitalization)
  Sender: FDA-Public Use
  Company Number: JP-ROCHE-2304978

PATIENT
  Age: 42 Year
  Sex: Female
  Weight: 56 kg

DRUGS (4)
  1. BAKTAR [Concomitant]
     Active Substance: SULFAMETHOXAZOLE\TRIMETHOPRIM
     Indication: OFF LABEL USE
     Route: 065
     Dates: start: 20180417, end: 20180424
  2. TOCILIZUMAB. [Suspect]
     Active Substance: TOCILIZUMAB
     Indication: OFF LABEL USE
  3. PREDNISOLONE. [Concomitant]
     Active Substance: PREDNISOLONE
     Indication: OFF LABEL USE
     Route: 065
     Dates: start: 20180415, end: 20190122
  4. TOCILIZUMAB. [Suspect]
     Active Substance: TOCILIZUMAB
     Indication: STILL^S DISEASE
     Route: 041
     Dates: start: 20180418, end: 20180418

REACTIONS (5)
  - Disseminated intravascular coagulation [Recovered/Resolved]
  - Liver disorder [Recovered/Resolved]
  - Intentional product use issue [Unknown]
  - Off label use [Unknown]
  - Haemophagocytic lymphohistiocytosis [Recovered/Resolved]

NARRATIVE: CASE EVENT DATE: 20180424
